FAERS Safety Report 7394278-2 (Version None)
Quarter: 2011Q2

REPORT INFORMATION
  Report Type: 
  Country: None (occurrence: None)
  Receive Date: 20110405
  Receipt Date: 20110322
  Transmission Date: 20111010
  Serious: Yes (Disabling)
  Sender: FDA-Public Use
  Company Number: JP-AMGEN-JPNCT2011011380

PATIENT
  Age: 54 Year
  Sex: Male
  Weight: 89 kg

DRUGS (8)
  1. PREDONINE [Suspect]
     Route: 048
     Dates: end: 20110202
  2. ANTIHISTAMINES [Concomitant]
     Indication: PROPHYLAXIS
     Dosage: UNK
     Route: 065
  3. PREDONINE [Suspect]
     Indication: NAUSEA
     Route: 048
     Dates: start: 20100101
  4. PANITUMUMAB [Suspect]
     Dosage: 6 MG/KG, Q2WK
     Route: 041
     Dates: start: 20101028, end: 20101028
  5. CORTICOSTEROIDS [Suspect]
     Indication: PROPHYLAXIS
     Route: 065
  6. PANITUMUMAB [Suspect]
     Indication: COLORECTAL CANCER
     Dosage: 6 MG/KG, Q2WK
     Route: 041
     Dates: start: 20100805, end: 20100916
  7. BETAMETHASONE [Suspect]
     Route: 048
     Dates: start: 20110203
  8. BETAMETHASONE [Suspect]
     Route: 048

REACTIONS (3)
  - LIVER DISORDER [None]
  - DERMATITIS ACNEIFORM [None]
  - INFUSION RELATED REACTION [None]
